FAERS Safety Report 5102979-1 (Version None)
Quarter: 2006Q3

REPORT INFORMATION
  Report Type: 
  Country: None (occurrence: None)
  Receive Date: 20060908
  Receipt Date: 20060824
  Transmission Date: 20061208
  Serious: Yes (Life-Threatening, Hospitalization)
  Sender: FDA-Public Use
  Company Number: 221077

PATIENT
  Age: 62 Year
  Sex: Male
  Weight: 71 kg

DRUGS (6)
  1. BEVACIZUMAB (BEVACIZUMAB) PWDR + SOLVENT, INFUSION SOLN, 100MG [Suspect]
     Indication: NON-SMALL CELL LUNG CANCER
     Dosage: 15 MG/KG, Q3W, INTRAVENOUS
     Route: 042
     Dates: start: 20050311, end: 20051215
  2. CISPLATIN [Suspect]
     Indication: NON-SMALL CELL LUNG CANCER
     Dosage: 80 MG/M2, Q3W, INTRAVENOUS
     Route: 042
     Dates: start: 20050311
  3. GEMCITABINE [Suspect]
     Indication: NON-SMALL CELL LUNG CANCER
     Dosage: 1250 MG/M2, Q3W
     Dates: start: 20050311
  4. ADALAT [Concomitant]
  5. RAMIPRIL [Concomitant]
  6. NORVASC [Concomitant]

REACTIONS (6)
  - C-REACTIVE PROTEIN INCREASED [None]
  - DIVERTICULITIS [None]
  - GASTROINTESTINAL PERFORATION [None]
  - ILEAL ULCER [None]
  - INTESTINAL ISCHAEMIA [None]
  - WOUND DEHISCENCE [None]
